FAERS Safety Report 14343132 (Version 1)
Quarter: 2017Q4

REPORT INFORMATION
  Report Type: Spontaneous
  Country: US (occurrence: US)
  Receive Date: 20171231
  Receipt Date: 20171231
  Transmission Date: 20180321
  Serious: No
  Sender: FDA-Public Use
  Company Number: None

PATIENT
  Age: 44 Year
  Sex: Female
  Weight: 83.25 kg

DRUGS (3)
  1. LEVOCETIRIZINE DIHYDRO TABS 5 MG [Suspect]
     Active Substance: LEVOCETIRIZINE DIHYDROCHLORIDE
     Indication: UPPER-AIRWAY COUGH SYNDROME
     Dosage: ?          QUANTITY:1 TABLET(S);?
     Route: 048
     Dates: start: 20160823, end: 20171228
  2. FOLATE [Concomitant]
     Active Substance: FOLATE SODIUM
  3. LEVOCETIRIZINE DIHYDRO TABS 5 MG [Suspect]
     Active Substance: LEVOCETIRIZINE DIHYDROCHLORIDE
     Indication: MULTIPLE ALLERGIES
     Dosage: ?          QUANTITY:1 TABLET(S);?
     Route: 048
     Dates: start: 20160823, end: 20171228

REACTIONS (2)
  - Pruritus generalised [None]
  - Withdrawal syndrome [None]

NARRATIVE: CASE EVENT DATE: 20171231
